FAERS Safety Report 12543273 (Version 1)
Quarter: 2016Q3

REPORT INFORMATION
  Report Type: Spontaneous
  Country: US (occurrence: US)
  Receive Date: 20160711
  Receipt Date: 20160711
  Transmission Date: 20161109
  Serious: No
  Sender: FDA-Public Use
  Company Number: US-STRIDES ARCOLAB LIMITED-2016SP007551

PATIENT

DRUGS (2)
  1. LIQUID NITROGEN [Concomitant]
     Active Substance: NITROGEN
     Indication: SKIN PAPILLOMA
     Dosage: UNK
  2. IMIQUIMOD. [Suspect]
     Active Substance: IMIQUIMOD
     Indication: SKIN PAPILLOMA
     Dosage: UNK, 5 TIMES A WEEK
     Route: 061

REACTIONS (1)
  - Mouth ulceration [Recovered/Resolved]
